FAERS Safety Report 24764516 (Version 3)
Quarter: 2025Q1

REPORT INFORMATION
  Report Type: Report from Study
  Country: CO (occurrence: CO)
  Receive Date: 20241223
  Receipt Date: 20250331
  Transmission Date: 20250408
  Serious: Yes (Hospitalization, Other)
  Sender: TAKEDA
  Company Number: CO-TAKEDA-2024TUS116685

PATIENT
  Age: 34 Year
  Sex: Female
  Weight: 75 kg

DRUGS (2)
  1. VEDOLIZUMAB [Suspect]
     Active Substance: VEDOLIZUMAB
     Indication: Colitis ulcerative
  2. VEDOLIZUMAB [Suspect]
     Active Substance: VEDOLIZUMAB

REACTIONS (7)
  - Gastrointestinal haemorrhage [Recovered/Resolved]
  - Anaemia [Recovered/Resolved]
  - Diarrhoea haemorrhagic [Recovering/Resolving]
  - Electrolyte imbalance [Recovering/Resolving]
  - Abdominal pain [Recovering/Resolving]
  - Tuberculin test positive [Unknown]
  - Product availability issue [Unknown]

NARRATIVE: CASE EVENT DATE: 20241109
